FAERS Safety Report 25101673 (Version 1)
Quarter: 2025Q1

REPORT INFORMATION
  Report Type: Spontaneous
  Country: GB (occurrence: GB)
  Receive Date: 20250320
  Receipt Date: 20250320
  Transmission Date: 20250408
  Serious: Yes (Hospitalization, Other)
  Sender: AMERICAN REGENT
  Company Number: GB-AMERICAN REGENT INC-2025001115

PATIENT
  Sex: Female

DRUGS (1)
  1. FERINJECT [Suspect]
     Active Substance: FERRIC CARBOXYMALTOSE
     Indication: Anaemia
     Route: 065
     Dates: start: 20250310

REACTIONS (2)
  - Product administration error [Unknown]
  - Extravasation [Recovered/Resolved]
